FAERS Safety Report 4741017-7 (Version None)
Quarter: 2005Q3

REPORT INFORMATION
  Report Type: 
  Country: None (occurrence: None)
  Receive Date: 20050810
  Receipt Date: 20050603
  Transmission Date: 20060218
  Serious: No
  Sender: FDA-Public Use
  Company Number: US-GLAXOSMITHKLINE-A0561119A

PATIENT
  Sex: Female

DRUGS (2)
  1. PAXIL [Suspect]
     Dosage: 40MG PER DAY
     Route: 048
     Dates: end: 20050601
  2. NO CONCURRENT MEDICATION [Concomitant]

REACTIONS (3)
  - DISTURBANCE IN ATTENTION [None]
  - DIZZINESS [None]
  - VISION BLURRED [None]
